FAERS Safety Report 18506654 (Version 1)
Quarter: 2020Q4

REPORT INFORMATION
  Report Type: Spontaneous
  Country: US (occurrence: US)
  Receive Date: 20201116
  Receipt Date: 20201116
  Transmission Date: 20210114
  Serious: Yes (Other)
  Sender: FDA-Public Use
  Company Number: US-PFIZER INC-2020445448

PATIENT
  Age: 70 Year
  Sex: Female
  Weight: 99.79 kg

DRUGS (3)
  1. IBRANCE [Suspect]
     Active Substance: PALBOCICLIB
     Dosage: 100 MG
  2. IBRANCE [Suspect]
     Active Substance: PALBOCICLIB
     Indication: BREAST CANCER FEMALE
     Dosage: 125 MG
     Dates: start: 201511
  3. IBRANCE [Suspect]
     Active Substance: PALBOCICLIB
     Dosage: 75 MG, 1X/DAY
     Route: 048
     Dates: end: 20201029

REACTIONS (5)
  - Blood count abnormal [Unknown]
  - Neutrophil count decreased [Recovering/Resolving]
  - Lymphocyte count decreased [Unknown]
  - Feeling abnormal [Unknown]
  - Palmar-plantar erythrodysaesthesia syndrome [Unknown]
